FAERS Safety Report 5076404-3 (Version None)
Quarter: 2006Q3

REPORT INFORMATION
  Report Type: 
  Country: None (occurrence: None)
  Receive Date: 20060807
  Receipt Date: 20060726
  Transmission Date: 20061208
  Serious: Yes (Hospitalization)
  Sender: FDA-Public Use
  Company Number: BR200608000101

PATIENT
  Age: 102 Year
  Sex: Female
  Weight: 80 kg

DRUGS (2)
  1. FORTEO [Suspect]
     Indication: OSTEOPOROSIS
     Dosage: 20 UG, DAILY (1/D), SUBCUTANEOUS
     Route: 058
     Dates: start: 20060526
  2. FORTEO [Concomitant]

REACTIONS (4)
  - GASTRIC ULCER [None]
  - HAEMORRHAGE [None]
  - ISCHAEMIA [None]
  - PNEUMONIA [None]
